FAERS Safety Report 6468848-X (Version None)
Quarter: 2009Q4

REPORT INFORMATION
  Report Type: 
  Country: None (occurrence: None)
  Receive Date: 20091203
  Receipt Date: 20080321
  Transmission Date: 20100525
  Serious: Yes (Other)
  Sender: FDA-Public Use
  Company Number: DE-ELI_LILLY_AND_COMPANY-DE200611003077

PATIENT
  Sex: Female
  Weight: 57 kg

DRUGS (2)
  1. DULOXETINE HYDROCHLORIDE [Suspect]
     Indication: DEPRESSION
     Dosage: 60 MG, DAILY (1/D)
     Route: 048
     Dates: start: 20060427, end: 20061003
  2. YASMIN/SWE/ [Concomitant]
     Indication: CONTRACEPTION
     Dosage: UNK, DAILY (1/D)
     Route: 048
     Dates: start: 20060201, end: 20061003

REACTIONS (1)
  - UNINTENDED PREGNANCY [None]
